FAERS Safety Report 9267679 (Version 1)
Quarter: 2013Q2

REPORT INFORMATION
  Report Type: Spontaneous
  Country: GB (occurrence: GB)
  Receive Date: 20130502
  Receipt Date: 20130502
  Transmission Date: 20140414
  Serious: Yes (Hospitalization)
  Sender: FDA-Public Use
  Company Number: GB-TEVA-402113ISR

PATIENT
  Age: 51 Year
  Sex: Male

DRUGS (1)
  1. ERYTHROMYCIN [Suspect]
     Indication: LOWER RESPIRATORY TRACT INFECTION
     Dosage: 2000 MILLIGRAM DAILY;
     Route: 048
     Dates: start: 20130408, end: 20130411

REACTIONS (5)
  - Stevens-Johnson syndrome [Recovering/Resolving]
  - Oral pain [Recovering/Resolving]
  - Oral mucosal blistering [Recovering/Resolving]
  - Mouth haemorrhage [Recovering/Resolving]
  - Mouth ulceration [Recovering/Resolving]
